FAERS Safety Report 16273041 (Version 2)
Quarter: 2019Q3

REPORT INFORMATION
  Report Type: Spontaneous
  Country: US (occurrence: US)
  Receive Date: 20190503
  Receipt Date: 20190805
  Transmission Date: 20191004
  Serious: No
  Sender: FDA-Public Use
  Company Number: US-RADIUS HEALTH INC.-2019US000835

PATIENT
  Sex: Female

DRUGS (4)
  1. EDARBI [Concomitant]
     Active Substance: AZILSARTAN KAMEDOXOMIL
     Indication: HYPERTENSION
  2. MAGNESIUM [Concomitant]
     Active Substance: MAGNESIUM
     Indication: PALPITATIONS
  3. ZYRTEC [Concomitant]
     Active Substance: CETIRIZINE HYDROCHLORIDE
     Indication: HYPERSENSITIVITY
  4. TYMLOS [Suspect]
     Active Substance: ABALOPARATIDE
     Indication: OSTEOPOROSIS POSTMENOPAUSAL
     Dosage: 80 MCG, QD
     Route: 058
     Dates: start: 20180717, end: 201903

REACTIONS (4)
  - Orthostatic hypotension [Unknown]
  - Heart rate irregular [Unknown]
  - Migraine [Unknown]
  - Tachycardia [Unknown]
